FAERS Safety Report 6878482-5 (Version None)
Quarter: 2010Q3

REPORT INFORMATION
  Report Type: 
  Country: None (occurrence: None)
  Receive Date: 20100728
  Receipt Date: 20100721
  Transmission Date: 20110219
  Serious: Yes (Hospitalization)
  Sender: FDA-Public Use
  Company Number: JP-MERCK-1006USA04585

PATIENT
  Age: 48 Year
  Sex: Male

DRUGS (4)
  1. PEPCID RPD [Suspect]
     Route: 048
  2. IMURAN [Suspect]
     Route: 048
  3. PENTASA [Suspect]
     Route: 048
  4. PREDONINE [Concomitant]
     Route: 048

REACTIONS (1)
  - LIVER DISORDER [None]
